FAERS Safety Report 25962065 (Version 1)
Quarter: 2025Q4

REPORT INFORMATION
  Report Type: Spontaneous
  Country: US (occurrence: None)
  Receive Date: 20251024
  Receipt Date: 20251024
  Transmission Date: 20260118
  Serious: Yes (Hospitalization)
  Sender: FDA-CTU
  Company Number: None

PATIENT
  Age: 69 Year
  Sex: Male
  Weight: 85.5 kg

DRUGS (4)
  1. CAPLYTA [Suspect]
     Active Substance: LUMATEPERONE
     Indication: Bipolar I disorder
     Dosage: 1 CAPSULE AT BEDTIME ORAL ?
     Route: 048
     Dates: start: 20251014, end: 20251018
  2. Lithium 300 mg. Three, once daily [Concomitant]
  3. Atorvastatin 20 mg once daily [Concomitant]
  4. fluoxetine 20 mg. Once daily [Concomitant]

REACTIONS (4)
  - Dyskinesia [None]
  - Coordination abnormal [None]
  - Toxic encephalopathy [None]
  - Delusion [None]

NARRATIVE: CASE EVENT DATE: 20251019
